FAERS Safety Report 6519628-8 (Version None)
Quarter: 2009Q4

REPORT INFORMATION
  Report Type: 
  Country: None (occurrence: None)
  Receive Date: 20091228
  Receipt Date: 20091214
  Transmission Date: 20100525
  Serious: Yes (Hospitalization, Disabling, Other)
  Sender: FDA-Public Use
  Company Number: FR-ABBOTT-09P-056-0615439-00

PATIENT
  Sex: Female

DRUGS (3)
  1. ENANTONE LP 3.75 MG PREP INJ [Suspect]
     Indication: ENDOMETRIOSIS
     Dates: start: 19951001, end: 19960501
  2. DANATROL [Concomitant]
     Indication: ENDOMETRIOSIS
     Dates: start: 19970101, end: 19980101
  3. SURGESTONE [Concomitant]
     Indication: ENDOMETRIOSIS
     Dates: start: 19970101, end: 19980101

REACTIONS (6)
  - CARPAL TUNNEL SYNDROME [None]
  - FIBROMYALGIA [None]
  - HEARING IMPAIRED [None]
  - HYPERSENSITIVITY [None]
  - MIGRAINE [None]
  - THORACIC OUTLET SYNDROME [None]
